FAERS Safety Report 5393903-5 (Version None)
Quarter: 2007Q3

REPORT INFORMATION
  Report Type: 
  Country: None (occurrence: None)
  Receive Date: 20070723
  Receipt Date: 20070119
  Transmission Date: 20080115
  Serious: No
  Sender: FDA-Public Use
  Company Number: A0625071A

PATIENT
  Age: 80 Year
  Sex: Male

DRUGS (8)
  1. AVANDIA [Suspect]
     Dosage: 8MG PER DAY
     Route: 048
     Dates: start: 20040101
  2. LORAZEPAM [Concomitant]
  3. HYDROXYZINE [Concomitant]
  4. PROZAC [Concomitant]
  5. SINEQUAN [Concomitant]
  6. ZETIA [Concomitant]
  7. LIPITOR [Concomitant]
  8. FLONASE [Concomitant]

REACTIONS (2)
  - FATIGUE [None]
  - WEIGHT INCREASED [None]
